FAERS Safety Report 9380280 (Version 1)
Quarter: 2013Q2

REPORT INFORMATION
  Report Type: Spontaneous
  Country: GB (occurrence: None)
  Receive Date: 20130628
  Receipt Date: 20130628
  Transmission Date: 20140414
  Serious: Yes (Other)
  Sender: FDA-Public Use
  Company Number: GER/UKI/13/0030184

PATIENT
  Age: 81 Year
  Sex: Female

DRUGS (7)
  1. OMEPRAZOLE (OMEPRAZOLE) [Suspect]
     Indication: PRODUCT USED FOR UNKNOWN INDICATION
     Route: 048
     Dates: end: 20130607
  2. FUROSEMIDE (FUROSEMIDE) [Suspect]
     Indication: PRODUCT USED FOR UNKNOWN INDICATION
  3. ASPIRIN (ACETYLSALICYLIC ACID) [Concomitant]
  4. BISOPROLOL (BISOPROLOL) [Concomitant]
  5. DOXAZOSIN (DOXAZOSIN) [Concomitant]
  6. LISINOPRIL (LISINOPRIL) [Concomitant]
  7. METFORMION (METFORMIN) [Concomitant]

REACTIONS (2)
  - Hypocalcaemia [None]
  - Hypomagnesaemia [None]
